FAERS Safety Report 8761124 (Version 3)
Quarter: 2012Q4

REPORT INFORMATION
  Report Type: 
  Country: US (occurrence: US)
  Receive Date: 20120830
  Receipt Date: 20121012
  Transmission Date: 20130627
  Serious: Yes (Other)
  Sender: FDA-Public Use
  Company Number: US-TEVA-355856USA

PATIENT
  Age: 27 Year
  Sex: Female

DRUGS (2)
  1. CLARAVIS [Suspect]
     Route: 048
     Dates: start: 201205, end: 20120704
  2. SEASONIQUE [Concomitant]
     Route: 048

REACTIONS (2)
  - Unintended pregnancy [Unknown]
  - Drug administration error [Unknown]
